FAERS Safety Report 8038533-1 (Version None)
Quarter: 2012Q1

REPORT INFORMATION
  Report Type: 
  Country: None (occurrence: None)
  Receive Date: 20120111
  Receipt Date: 20111201
  Transmission Date: 20120608
  Serious: No
  Sender: FDA-Public Use
  Company Number: US-AMGEN-USASP2011063887

PATIENT
  Age: 49 Year
  Sex: Female

DRUGS (3)
  1. ENBREL [Suspect]
     Indication: PSORIATIC ARTHROPATHY
  2. ENBREL [Suspect]
     Indication: PSORIASIS
  3. ENBREL [Suspect]
     Indication: RHEUMATOID ARTHRITIS
     Dosage: 50 MG, 2 TIMES/WK
     Dates: start: 20110930

REACTIONS (6)
  - RHEUMATOID ARTHRITIS [None]
  - DRUG INEFFECTIVE [None]
  - BLOOD GLUCOSE FLUCTUATION [None]
  - INJECTION SITE HAEMATOMA [None]
  - PSORIATIC ARTHROPATHY [None]
  - INJECTION SITE PAIN [None]
